FAERS Safety Report 7937394-6 (Version None)
Quarter: 2011Q4

REPORT INFORMATION
  Report Type: 
  Country: None (occurrence: None)
  Receive Date: 20111123
  Receipt Date: 20111117
  Transmission Date: 20120403
  Serious: Yes (Disabling)
  Sender: FDA-Public Use
  Company Number: US-PFIZER INC-2011281151

PATIENT
  Age: 81 Year
  Sex: Male

DRUGS (2)
  1. TORISEL [Suspect]
     Indication: THYROID CANCER
     Dosage: UNK
     Route: 042
     Dates: start: 20110922, end: 20111102
  2. SORAFENIB [Suspect]
     Indication: THYROID CANCER
     Dosage: UNK
     Route: 048
     Dates: start: 20110922, end: 20111107

REACTIONS (3)
  - DEHYDRATION [None]
  - FATIGUE [None]
  - DECREASED APPETITE [None]
